FAERS Safety Report 10455502 (Version 1)
Quarter: 2014Q3

REPORT INFORMATION
  Report Type: Spontaneous
  Country: US (occurrence: None)
  Receive Date: 20140915
  Receipt Date: 20140915
  Transmission Date: 20150326
  Serious: Yes (Life-Threatening, Hospitalization)
  Sender: FDA-Public Use
  Company Number: None

PATIENT
  Age: 45 Year
  Sex: Female

DRUGS (1)
  1. AMBIEN [Suspect]
     Active Substance: ZOLPIDEM TARTRATE
     Dosage: 2 PILLS, AT BEDTIME, TAKEN BY MOUTH
     Route: 048

REACTIONS (5)
  - Hepatic failure [None]
  - Somnambulism [None]
  - Memory impairment [None]
  - Migraine [None]
  - Overdose [None]
